FAERS Safety Report 7796189-7 (Version None)
Quarter: 2011Q4

REPORT INFORMATION
  Report Type: 
  Country: None (occurrence: None)
  Receive Date: 20111004
  Receipt Date: 20110919
  Transmission Date: 20120403
  Serious: Yes (Other)
  Sender: FDA-Public Use
  Company Number: GB-WATSON-2011-15766

PATIENT
  Age: 9 Year
  Sex: Female

DRUGS (3)
  1. CYCLOSPORINE [Suspect]
     Indication: IMMUNOSUPPRESSION
     Route: 065
  2. PREDNISOLONE [Suspect]
     Indication: IMMUNOSUPPRESSION
     Dosage: 1 MG/KG (UP TO 60 MG); DOSES REDUCED TO 10 MG/DAY FOR THE FIRST 6 MOS
     Route: 048
  3. CYCLOPHOSPHAMIDE [Suspect]
     Indication: IMMUNOSUPPRESSION

REACTIONS (9)
  - URINARY TRACT INFECTION [None]
  - INFERTILITY [None]
  - OSTEONECROSIS [None]
  - BREAST CANCER [None]
  - PARONYCHIA [None]
  - OSTEOPOROSIS [None]
  - HIRSUTISM [None]
  - HERPES ZOSTER [None]
  - CUSHING'S SYNDROME [None]
